FAERS Safety Report 6553848-1 (Version None)
Quarter: 2010Q1

REPORT INFORMATION
  Report Type: 
  Country: None (occurrence: None)
  Receive Date: 20100127
  Receipt Date: 20100121
  Transmission Date: 20100710
  Serious: Yes (Hospitalization, Other)
  Sender: FDA-Public Use
  Company Number: DE-ROCHE-644815

PATIENT
  Sex: Female
  Weight: 80 kg

DRUGS (7)
  1. BEVACIZUMAB [Suspect]
     Indication: BREAST CANCER
     Route: 065
  2. TRASTUZUMAB [Suspect]
     Indication: BREAST CANCER
     Route: 065
  3. PACLITAXEL [Suspect]
     Indication: BREAST CANCER
     Dosage: TEMPORARILY INTERRUPTED. LAST DOSE: 03 JULY 2009
     Route: 042
     Dates: start: 20090626, end: 20090710
  4. PACLITAXEL [Suspect]
     Route: 042
     Dates: end: 20090903
  5. PACLITAXEL [Suspect]
     Dosage: PERMANENTLY DISCONTINUED.
     Route: 042
     Dates: end: 20090914
  6. RAD001 [Suspect]
     Indication: BREAST CANCER
     Dosage: FREQUENCY: EVERYDAY
     Route: 048
     Dates: start: 20090619, end: 20090903
  7. RAD001 [Suspect]
     Dosage: PERMANENTLY DISCONTINUED.
     Route: 048
     Dates: end: 20090914

REACTIONS (3)
  - OTITIS MEDIA [None]
  - PALMAR-PLANTAR ERYTHRODYSAESTHESIA SYNDROME [None]
  - PYREXIA [None]
